FAERS Safety Report 9429936 (Version 1)
Quarter: 2013Q3

REPORT INFORMATION
  Report Type: Report from Study
  Country: US (occurrence: US)
  Receive Date: 20130730
  Receipt Date: 20130730
  Transmission Date: 20140515
  Serious: No
  Sender: FDA-Public Use
  Company Number: US-ABBOTT-13P-163-1076756-00

PATIENT
  Sex: Male
  Weight: 86.26 kg

DRUGS (6)
  1. NIASPAN (COATED) [Suspect]
     Indication: ARTERIOSCLEROSIS
     Dates: start: 201303
  2. LOTENSIN [Concomitant]
     Indication: PRODUCT USED FOR UNKNOWN INDICATION
  3. BYSTOLIC [Concomitant]
     Indication: PRODUCT USED FOR UNKNOWN INDICATION
  4. BLOOD SUGAR MEDICINE [Concomitant]
     Indication: PRODUCT USED FOR UNKNOWN INDICATION
  5. CATARACT MEDICINE [Concomitant]
     Indication: PRODUCT USED FOR UNKNOWN INDICATION
  6. VITAMINS [Concomitant]
     Indication: PRODUCT USED FOR UNKNOWN INDICATION

REACTIONS (2)
  - Rash [Not Recovered/Not Resolved]
  - Pruritus [Not Recovered/Not Resolved]
